FAERS Safety Report 8828564 (Version 1)
Quarter: 2012Q4

REPORT INFORMATION
  Report Type: 
  Country: CO (occurrence: CO)
  Receive Date: 20121005
  Receipt Date: 20121005
  Transmission Date: 20130627
  Serious: Yes (Other)
  Sender: FDA-Public Use
  Company Number: CO-AMGEN-COLSP2012039741

PATIENT
  Age: 54 Year
  Sex: Female

DRUGS (7)
  1. ENBREL [Suspect]
     Indication: RHEUMATOID ARTHRITIS
     Dosage: 50 mg, weekly
     Route: 058
     Dates: start: 20111123, end: 20120924
  2. TIROXINA [Concomitant]
     Indication: THYROID DISORDER
     Dosage: 75 mg, 1x/day
     Route: 048
     Dates: start: 1992
  3. ARAVA [Concomitant]
     Indication: RHEUMATOID ARTHRITIS
     Dosage: UNK
     Dates: start: 2010
  4. CORTISONE [Concomitant]
     Indication: RHEUMATOID ARTHRITIS
     Dosage: UNK
     Dates: start: 201204
  5. LIVIAL [Concomitant]
     Dosage: UNK
     Route: 065
     Dates: start: 201009
  6. DORIXINA RELAX [Concomitant]
     Indication: FIBROMYALGIA
     Dosage: 125 mg, 1x/day
     Route: 048
     Dates: start: 201109
  7. OMEPRAZOL                          /00661201/ [Concomitant]
     Dosage: UNK
     Dates: start: 2008

REACTIONS (6)
  - Pain in extremity [Not Recovered/Not Resolved]
  - Rheumatoid arthritis [Not Recovered/Not Resolved]
  - Drug ineffective [Not Recovered/Not Resolved]
  - Pain [Not Recovered/Not Resolved]
  - Discomfort [Not Recovered/Not Resolved]
  - Swelling [Not Recovered/Not Resolved]
